FAERS Safety Report 18755482 (Version 1)
Quarter: 2021Q1

REPORT INFORMATION
  Report Type: Spontaneous
  Country: CN (occurrence: CN)
  Receive Date: 20210119
  Receipt Date: 20210119
  Transmission Date: 20210419
  Serious: Yes (Other)
  Sender: FDA-Public Use
  Company Number: CN-SA-2021SA012735

PATIENT
  Age: 55 Year
  Sex: Male
  Weight: 63 kg

DRUGS (5)
  1. RIFAPENTINE [Suspect]
     Active Substance: RIFAPENTINE
     Indication: TUBERCULOUS PLEURISY
     Dosage: 0.6 G, BIW
     Route: 048
     Dates: start: 20201226, end: 20201227
  2. ETHAMBUTOL [Suspect]
     Active Substance: ETHAMBUTOL HYDROCHLORIDE
     Indication: TUBERCULOUS PLEURISY
     Dosage: 0.75 G, QD
     Route: 048
     Dates: start: 20201226, end: 20201227
  3. ISONIAZID. [Suspect]
     Active Substance: ISONIAZID
     Indication: TUBERCULOUS PLEURISY
     Dosage: 0.3 G, QD
     Route: 041
     Dates: start: 20201226, end: 20201227
  4. SODIUM CHLORIDE. [Suspect]
     Active Substance: SODIUM CHLORIDE
     Indication: TUBERCULOUS PLEURISY
     Dosage: 100 ML, QD
     Route: 041
     Dates: start: 20201226, end: 20201227
  5. LEVOFLOXACIN. [Suspect]
     Active Substance: LEVOFLOXACIN
     Indication: TUBERCULOUS PLEURISY
     Dosage: 0.5 G, QD
     Route: 048
     Dates: start: 20201226, end: 20201227

REACTIONS (5)
  - Flushing [Unknown]
  - Off label use [Unknown]
  - Pruritus [Unknown]
  - Urticaria [Unknown]
  - Eyelid oedema [Unknown]

NARRATIVE: CASE EVENT DATE: 20201227
